FAERS Safety Report 6533035-3 (Version None)
Quarter: 2010Q1

REPORT INFORMATION
  Report Type: 
  Country: None (occurrence: None)
  Receive Date: 20100111
  Receipt Date: 20100104
  Transmission Date: 20100710
  Serious: Yes (Other)
  Sender: FDA-Public Use
  Company Number: US-PFIZER INC-2010002229

PATIENT
  Sex: Female

DRUGS (18)
  1. DETROL LA [Suspect]
     Indication: HYPERTONIC BLADDER
     Dosage: 4 MG, 1X/DAY
     Route: 048
  2. OXYBUTYNIN CHLORIDE [Suspect]
     Indication: HYPERTONIC BLADDER
     Dosage: UNK
  3. NEXIUM [Concomitant]
     Indication: ABDOMINAL DISCOMFORT
     Dosage: 40 MG, 1X/DAY
  4. DIFLUCAN [Concomitant]
     Indication: FUNGAL INFECTION
     Dosage: UNK
  5. CIPROFLOXACIN [Concomitant]
     Indication: KIDNEY INFECTION
     Dosage: 250 MG, UNK
  6. BYETTA [Concomitant]
     Indication: DIABETES MELLITUS
     Dosage: 10 UG, UNK
  7. NOVOLOG [Concomitant]
     Indication: DIABETES MELLITUS
     Dosage: FREQUENCY: 4X/DAY,
  8. NOVOLOG MIX 70/30 [Concomitant]
     Indication: DIABETES MELLITUS
     Dosage: FREQUENCY: 3X/DAY,
  9. LANTUS [Concomitant]
     Indication: DIABETES MELLITUS
     Dosage: UNK
  10. ZYRTEC [Concomitant]
     Indication: HYPERSENSITIVITY
     Dosage: UNK
  11. ULTRAM [Concomitant]
     Dosage: 50 MG, UNK
  12. MAXZIDE [Concomitant]
     Indication: HYPERTENSION
     Dosage: UNK
  13. FLONASE [Concomitant]
     Indication: HYPERSENSITIVITY
     Dosage: UNK
     Route: 045
  14. PATANOL [Concomitant]
     Indication: EYE DISORDER
     Dosage: UNK
  15. PLAVIX [Concomitant]
     Dosage: 20 MG, 1X/DAY
  16. ATARAX [Concomitant]
     Indication: PRURITUS
     Dosage: FREQUENCY: 3-4 TIMES A DAY,
  17. ALTACE [Concomitant]
     Indication: HYPERTENSION
     Dosage: 10 MG, 1X/DAY
  18. XANAX [Concomitant]
     Indication: VERTIGO
     Dosage: UNK

REACTIONS (7)
  - ANAEMIA [None]
  - CONSTIPATION [None]
  - DRUG INEFFECTIVE [None]
  - DRY MOUTH [None]
  - INCONTINENCE [None]
  - VISION BLURRED [None]
  - VITAMIN D DECREASED [None]
